FAERS Safety Report 9473599 (Version 2)
Quarter: 2013Q3

REPORT INFORMATION
  Report Type: Spontaneous
  Country: US (occurrence: US)
  Receive Date: 20130823
  Receipt Date: 20130823
  Transmission Date: 20140515
  Serious: Yes (Other)
  Sender: FDA-Public Use
  Company Number: US-BRISTOL-MYERS SQUIBB COMPANY-16630618

PATIENT
  Age: 83 Year
  Sex: Female

DRUGS (18)
  1. SPRYCEL (CML) TABS [Suspect]
     Indication: CHRONIC MYELOID LEUKAEMIA
     Dosage: 15MAY2012
     Route: 048
     Dates: start: 20120515, end: 20120524
  2. AMLODIPINE [Concomitant]
     Dosage: 2-5 CAPS DAILY
  3. ASPIRIN [Concomitant]
     Dosage: 1(81MG) TABS,CHEWABLE DAILY
     Route: 048
  4. BISOPROLOL FUMARATE + HCTZ [Concomitant]
     Dosage: 1 TABS(5-6.25MG)TABS ORAL DAILY
     Route: 048
     Dates: start: 20120430
  5. CALCITRATE [Concomitant]
     Dosage: 1(315-200 MG UNMITS)
     Route: 048
  6. CHONDROITIN SULFATE [Concomitant]
     Dosage: 2(400-60-2.5MG). CAPS
     Route: 048
  7. CRESTOR [Concomitant]
     Dosage: 1 TABS
     Route: 048
     Dates: start: 20120430
  8. FISH OIL [Concomitant]
     Dosage: CAPS
     Route: 048
     Dates: start: 20120430
  9. GLUCOSAMINE [Concomitant]
     Dosage: TABS
     Route: 048
     Dates: start: 20120430
  10. MULTIVITAMINS [Concomitant]
     Dosage: 1 TABS
     Route: 048
     Dates: start: 20120430
  11. NORVASC [Concomitant]
     Route: 048
     Dates: start: 20120430
  12. OMEGA-3 [Concomitant]
     Dosage: 1 CAPS
     Route: 048
  13. POTASSIUM [Concomitant]
     Route: 048
  14. RESTASIS [Concomitant]
     Dosage: 1 EMULSION OPHHALMIC TID
     Route: 047
  15. SELENIUM [Concomitant]
     Dosage: 1(50-400MCG)CAPS
     Route: 048
  16. VITAMIN E [Concomitant]
     Dosage: 1(50-400MCG)CAPS
     Route: 048
  17. VITAMIN D [Concomitant]
     Dosage: 2(1000 UNITS)CAPS
     Route: 048
     Dates: start: 20120430
  18. VITAMIN C [Concomitant]
     Dosage: 2(400-60-2.5MG CAPS
     Route: 048

REACTIONS (2)
  - Pleural effusion [Unknown]
  - Pulmonary oedema [Recovered/Resolved]
